FAERS Safety Report 7463409-8 (Version None)
Quarter: 2011Q2

REPORT INFORMATION
  Report Type: 
  Country: None (occurrence: None)
  Receive Date: 20110506
  Receipt Date: 20110430
  Transmission Date: 20111010
  Serious: Yes (Other)
  Sender: FDA-Public Use
  Company Number: A0926167A

PATIENT
  Sex: Male

DRUGS (1)
  1. PAXIL [Suspect]
     Indication: MENTAL DISORDER
     Route: 048
     Dates: end: 20110401

REACTIONS (10)
  - WITHDRAWAL SYNDROME [None]
  - SELF ESTEEM DECREASED [None]
  - MOOD SWINGS [None]
  - ADVERSE DRUG REACTION [None]
  - ACNE [None]
  - ANGER [None]
  - TINNITUS [None]
  - RECTAL HAEMORRHAGE [None]
  - INFLUENZA LIKE ILLNESS [None]
  - HEADACHE [None]
